FAERS Safety Report 5275719-3 (Version None)
Quarter: 2007Q1

REPORT INFORMATION
  Report Type: 
  Country: None (occurrence: None)
  Receive Date: 20061213
  Receipt Date: 20040311
  Transmission Date: 20070707
  Serious: Yes (Hospitalization)
  Sender: FDA-Public Use
  Company Number: 2004UW04691

PATIENT
  Age: 12 Year
  Sex: Male
  Weight: 72.5755 kg

DRUGS (1)
  1. SEROQUEL [Suspect]
     Indication: BIPOLAR DISORDER
     Dosage: 125 MG PO
     Route: 048

REACTIONS (1)
  - DRUG INEFFECTIVE [None]
